FAERS Safety Report 20664723 (Version 1)
Quarter: 2022Q2

REPORT INFORMATION
  Report Type: Spontaneous
  Country: FR (occurrence: FR)
  Receive Date: 20220401
  Receipt Date: 20220401
  Transmission Date: 20220721
  Serious: Yes (Hospitalization, Congenital Anomaly, Other)
  Sender: FDA-Public Use
  Company Number: FR-ABBVIE-22K-056-4337235-00

PATIENT
  Sex: Female

DRUGS (2)
  1. VALPROATE SODIUM [Suspect]
     Active Substance: VALPROATE SODIUM
     Indication: Maternal exposure timing unspecified
     Route: 064
  2. FOLIC ACID [Concomitant]
     Active Substance: FOLIC ACID
     Indication: Maternal exposure timing unspecified

REACTIONS (41)
  - Ligament laxity [Unknown]
  - Scoliosis [Unknown]
  - Dysmorphism [Unknown]
  - Skin atrophy [Unknown]
  - Arachnodactyly [Unknown]
  - Speech disorder [Unknown]
  - Bicuspid aortic valve [Unknown]
  - Deformity thorax [Unknown]
  - Nasopharyngitis [Unknown]
  - Marfan^s syndrome [Unknown]
  - Influenza [Unknown]
  - Congenital foot malformation [Unknown]
  - Autism spectrum disorder [Unknown]
  - Rhinitis [Unknown]
  - Ear infection [Unknown]
  - Congenital musculoskeletal disorder of skull [Unknown]
  - Cognitive disorder [Unknown]
  - Hypotonia [Unknown]
  - Aortic dilatation [Unknown]
  - Foot deformity [Unknown]
  - Motor developmental delay [Unknown]
  - Posture abnormal [Unknown]
  - Spinal disorder [Unknown]
  - Motor dysfunction [Unknown]
  - Foot deformity [Unknown]
  - Joint laxity [Unknown]
  - Language disorder [Unknown]
  - Anger [Unknown]
  - Tension [Unknown]
  - Fine motor skill dysfunction [Unknown]
  - Hyperacusis [Unknown]
  - Drooling [Unknown]
  - Intellectual disability [Unknown]
  - Foetal exposure during pregnancy [Unknown]
  - Unevaluable event [Unknown]
  - Affect lability [Unknown]
  - Aggression [Unknown]
  - Disturbance in attention [Unknown]
  - Behaviour disorder [Unknown]
  - Anxiety [Unknown]
  - Agitation [Unknown]
